FAERS Safety Report 5867658-1 (Version None)
Quarter: 2008Q3

REPORT INFORMATION
  Report Type: 
  Country: None (occurrence: None)
  Receive Date: 20080902
  Receipt Date: 20080102
  Transmission Date: 20090109
  Serious: No
  Sender: FDA-Public Use
  Company Number: US-ABBOTT-08P-163-0432353-00

PATIENT
  Age: 56 Year
  Sex: Female
  Weight: 72.64 kg

DRUGS (5)
  1. DEPAKOTE ER [Suspect]
     Indication: BIPOLAR DISORDER
     Route: 048
     Dates: start: 20071101
  2. DEPAKOTE ER [Suspect]
     Indication: DEPRESSION
     Route: 048
  3. DEPAKOTE [Suspect]
     Indication: BIPOLAR DISORDER
     Route: 048
     Dates: start: 20071101, end: 20071101
  4. DEPAKOTE [Suspect]
     Indication: DEPRESSION
  5. LEVOTHYROXINE SODIUM [Concomitant]
     Indication: HYPOTHYROIDISM
     Route: 048

REACTIONS (6)
  - ASTHENOPIA [None]
  - DRUG INEFFECTIVE [None]
  - MUSCLE SPASMS [None]
  - RASH ERYTHEMATOUS [None]
  - SENSORY DISTURBANCE [None]
  - VISION BLURRED [None]
